FAERS Safety Report 11638939 (Version 2)
Quarter: 2015Q4

REPORT INFORMATION
  Report Type: Spontaneous
  Country: IT (occurrence: IT)
  Receive Date: 20151018
  Receipt Date: 20151204
  Transmission Date: 20160304
  Serious: Yes (Other)
  Sender: FDA-Public Use
  Company Number: IT-TEVA-600809ACC

PATIENT
  Age: 31 Year
  Sex: Male

DRUGS (6)
  1. TRISENOX [Suspect]
     Active Substance: ARSENIC TRIOXIDE
     Dosage: 10 MILLIGRAM DAILY;
     Route: 042
     Dates: start: 20151110
  2. TRISENOX [Suspect]
     Active Substance: ARSENIC TRIOXIDE
     Dosage: 6 MILLIGRAM DAILY;
     Route: 042
     Dates: start: 20151109
  3. TRISENOX [Suspect]
     Active Substance: ARSENIC TRIOXIDE
     Indication: ACUTE PROMYELOCYTIC LEUKAEMIA
     Dosage: 13.3 MILLIGRAM DAILY;
     Route: 042
     Dates: start: 20150916, end: 20150925
  4. VESANOID [Concomitant]
     Active Substance: TRETINOIN
     Indication: ACUTE PROMYELOCYTIC LEUKAEMIA
     Dosage: 90 MG
     Route: 048
     Dates: start: 20150914, end: 20150927
  5. VESANOID [Concomitant]
     Active Substance: TRETINOIN
     Dosage: 50 MILLIGRAM DAILY;
     Route: 048
     Dates: start: 20150928
  6. TRISENOX [Suspect]
     Active Substance: ARSENIC TRIOXIDE
     Dosage: 6 MILLIGRAM DAILY;
     Route: 042
     Dates: start: 20151002

REACTIONS (1)
  - Hepatotoxicity [Recovered/Resolved]

NARRATIVE: CASE EVENT DATE: 20150924
